FAERS Safety Report 6857758-1 (Version None)
Quarter: 2010Q3

REPORT INFORMATION
  Report Type: 
  Country: None (occurrence: None)
  Receive Date: 20100719
  Receipt Date: 20080122
  Transmission Date: 20110219
  Serious: No
  Sender: FDA-Public Use
  Company Number: US-PFIZER INC-2008009350

PATIENT
  Sex: Female
  Weight: 63.636 kg

DRUGS (3)
  1. CHANTIX [Suspect]
     Indication: SMOKING CESSATION THERAPY
     Dates: start: 20070701, end: 20070101
  2. NEXIUM [Concomitant]
     Indication: GASTROOESOPHAGEAL REFLUX DISEASE
  3. BENICAR [Concomitant]
     Indication: HYPERTENSION

REACTIONS (6)
  - CONSTIPATION [None]
  - FATIGUE [None]
  - FLATULENCE [None]
  - INSOMNIA [None]
  - NAUSEA [None]
  - NIGHTMARE [None]
